FAERS Safety Report 7091103-4 (Version None)
Quarter: 2010Q4

REPORT INFORMATION
  Report Type: 
  Country: None (occurrence: None)
  Receive Date: 20101109
  Receipt Date: 20101028
  Transmission Date: 20110411
  Serious: Yes (Other)
  Sender: FDA-Public Use
  Company Number: JP-ROCHE-711435

PATIENT
  Sex: Female

DRUGS (31)
  1. TOCILIZUMAB [Suspect]
     Indication: RHEUMATOID ARTHRITIS
     Route: 041
     Dates: start: 20080904, end: 20080904
  2. TOCILIZUMAB [Suspect]
     Route: 041
     Dates: start: 20081002, end: 20081002
  3. TOCILIZUMAB [Suspect]
     Route: 041
     Dates: start: 20081030, end: 20081030
  4. TOCILIZUMAB [Suspect]
     Route: 041
     Dates: start: 20081127, end: 20081127
  5. TOCILIZUMAB [Suspect]
     Route: 041
     Dates: start: 20081225, end: 20081225
  6. TOCILIZUMAB [Suspect]
     Route: 041
     Dates: start: 20090122, end: 20090122
  7. TOCILIZUMAB [Suspect]
     Route: 041
     Dates: start: 20090219, end: 20090219
  8. TOCILIZUMAB [Suspect]
     Route: 041
     Dates: start: 20090319, end: 20090101
  9. TOCILIZUMAB [Suspect]
     Route: 041
     Dates: start: 20091117, end: 20091117
  10. TOCILIZUMAB [Suspect]
     Route: 041
     Dates: start: 20091215, end: 20091215
  11. TOCILIZUMAB [Suspect]
     Route: 041
     Dates: start: 20100112, end: 20100112
  12. TOCILIZUMAB [Suspect]
     Route: 041
     Dates: start: 20100209, end: 20100209
  13. TOCILIZUMAB [Suspect]
     Route: 041
     Dates: start: 20100309, end: 20100309
  14. TOCILIZUMAB [Suspect]
     Route: 041
     Dates: start: 20100406, end: 20100406
  15. TOCILIZUMAB [Suspect]
     Route: 041
     Dates: start: 20100511, end: 20100511
  16. METHOTREXATE [Suspect]
     Indication: RHEUMATOID ARTHRITIS
     Route: 048
     Dates: start: 20081030, end: 20081224
  17. METHOTREXATE [Suspect]
     Dosage: DOSE DECREASED.
     Route: 048
     Dates: start: 20081225, end: 20090219
  18. METHOTREXATE [Suspect]
     Route: 048
     Dates: start: 20090220, end: 20090101
  19. METHOTREXATE [Suspect]
     Route: 048
     Dates: start: 20090101
  20. RIMATIL [Concomitant]
     Route: 048
  21. PREDNISOLONE [Concomitant]
     Route: 048
     Dates: start: 20081001
  22. PREDNISOLONE [Concomitant]
     Route: 048
     Dates: start: 20081002, end: 20091127
  23. PREDNISOLONE [Concomitant]
     Route: 048
     Dates: start: 20081128, end: 20090219
  24. PREDNISOLONE [Concomitant]
     Route: 048
     Dates: start: 20090220, end: 20090319
  25. PREDNISOLONE [Concomitant]
     Route: 048
     Dates: start: 20090320
  26. LOXONIN [Concomitant]
     Dosage: FORM: PERORAL AGENT
     Route: 048
  27. MUCOSTA [Concomitant]
     Dosage: FORM: PERORAL AGENT
     Route: 048
  28. TAKEPRON [Concomitant]
     Dosage: FORM: PERORAL AGENT
     Route: 048
  29. ZITHROMAX [Concomitant]
     Dosage: FORM: PERORAL AGENT
     Route: 048
     Dates: start: 20081003, end: 20081005
  30. MUCODYNE [Concomitant]
     Route: 048
     Dates: start: 20081003, end: 20081010
  31. FOLIAMIN [Concomitant]
     Dosage: FORM: PERORAL AGENT
     Route: 048
     Dates: start: 20090220

REACTIONS (4)
  - ABORTION SPONTANEOUS [None]
  - BRONCHITIS [None]
  - HEPATIC ENZYME INCREASED [None]
  - RHEUMATOID ARTHRITIS [None]
